FAERS Safety Report 25875720 (Version 1)
Quarter: 2025Q4

REPORT INFORMATION
  Report Type: Spontaneous
  Country: US (occurrence: US)
  Receive Date: 20251003
  Receipt Date: 20251003
  Transmission Date: 20260117
  Serious: No
  Sender: SANOFI AVENTIS
  Company Number: US-SANOFI-02671078

PATIENT
  Age: 74 Year
  Sex: Male

DRUGS (1)
  1. APIDRA SOLOSTAR [Suspect]
     Active Substance: INSULIN GLULISINE
     Indication: Type 2 diabetes mellitus
     Dosage: 5 UNITS (AM) ^+^ 8 UNITS (PM) BID
     Route: 065

REACTIONS (2)
  - Blood glucose decreased [Unknown]
  - Intentional product misuse [Unknown]
